FAERS Safety Report 17464379 (Version 3)
Quarter: 2020Q2

REPORT INFORMATION
  Report Type: Report from Study
  Country: None (occurrence: US)
  Receive Date: 20200226
  Receipt Date: 20200623
  Transmission Date: 20200713
  Serious: Yes (Other)
  Sender: FDA-Public Use
  Company Number: US-ABBVIE-17K-163-3086783-00

PATIENT
  Age: 60 Year
  Sex: Male
  Weight: 91 kg

DRUGS (18)
  1. ALLOPURINOL. [Concomitant]
     Active Substance: ALLOPURINOL
     Indication: PROPHYLAXIS
  2. IMODIUM A-D [Concomitant]
     Active Substance: LOPERAMIDE HYDROCHLORIDE
     Indication: IRRITABLE BOWEL SYNDROME
     Dosage: 2.0 MG, PRN
     Route: 048
  3. KEFLEX [Concomitant]
     Active Substance: CEPHALEXIN
     Indication: PRODUCT USED FOR UNKNOWN INDICATION
     Dosage: 40 MG, QD FOR 5 DAYS
     Route: 048
     Dates: start: 20170616, end: 20170620
  4. KEFLEX [Concomitant]
     Active Substance: CEPHALEXIN
     Dosage: 500 MG, BID
     Route: 048
  5. KEFLEX [Concomitant]
     Active Substance: CEPHALEXIN
     Dosage: 20 MG, QD
     Route: 048
     Dates: start: 20170621, end: 20170626
  6. KEFLEX [Concomitant]
     Active Substance: CEPHALEXIN
     Dosage: 30 MG, UNK
     Route: 048
     Dates: start: 20180711
  7. IMBRUVICA [Suspect]
     Active Substance: IBRUTINIB
     Indication: CHRONIC LYMPHOCYTIC LEUKAEMIA
     Dosage: 420 MG, QD
     Route: 048
     Dates: start: 20170627, end: 20170726
  8. PREDNISONE. [Suspect]
     Active Substance: PREDNISONE
     Dosage: 20 MG, UNK
     Route: 048
     Dates: start: 20170912, end: 20170926
  9. ALLOPURINOL. [Concomitant]
     Active Substance: ALLOPURINOL
     Indication: ANTIFUNGAL PROPHYLAXIS
     Dosage: 100 MG, QD
     Route: 048
     Dates: start: 20160725
  10. CELEXA [Concomitant]
     Active Substance: CITALOPRAM HYDROBROMIDE
     Indication: DEPRESSION
     Dosage: 20 MG, QD
     Route: 048
     Dates: start: 20150930, end: 20180714
  11. IMBRUVICA [Suspect]
     Active Substance: IBRUTINIB
     Dosage: 420 MG, QD
     Route: 048
     Dates: start: 20170809, end: 20180227
  12. OMEPRAZOLE. [Concomitant]
     Active Substance: OMEPRAZOLE
     Indication: IRRITABLE BOWEL SYNDROME
     Dosage: 20 MG, QD
     Route: 048
     Dates: start: 20170615, end: 20180714
  13. IVIG [Concomitant]
     Active Substance: HUMAN IMMUNOGLOBULIN G
     Indication: PRODUCT USED FOR UNKNOWN INDICATION
     Dosage: 400 ML, EVERY4 WEEKS
     Dates: start: 20180504
  14. IMBRUVICA [Suspect]
     Active Substance: IBRUTINIB
     Dosage: 280 MG, QD
     Route: 048
     Dates: start: 20180509, end: 20180711
  15. IMBRUVICA [Suspect]
     Active Substance: IBRUTINIB
     Dosage: 280 MG, QD
     Route: 048
     Dates: start: 20180403, end: 20180711
  16. PREDNISONE. [Suspect]
     Active Substance: PREDNISONE
     Dosage: 30 MG, QD
     Route: 048
     Dates: start: 20180712, end: 20180714
  17. IMBRUVICA [Suspect]
     Active Substance: IBRUTINIB
     Dosage: 280 MG, QD
     Route: 048
     Dates: start: 20180313, end: 20180430
  18. PREDNISONE. [Suspect]
     Active Substance: PREDNISONE
     Indication: CHRONIC LYMPHOCYTIC LEUKAEMIA
     Dosage: 10 MG, QD
     Route: 048
     Dates: start: 20170927

REACTIONS (1)
  - Pyoderma gangrenosum [Recovered/Resolved]

NARRATIVE: CASE EVENT DATE: 20170726
